FAERS Safety Report 9747674 (Version 1)
Quarter: 2013Q4

REPORT INFORMATION
  Report Type: Spontaneous
  Country: US (occurrence: None)
  Receive Date: 20131211
  Receipt Date: 20131211
  Transmission Date: 20140711
  Serious: No
  Sender: FDA-Public Use
  Company Number: None

PATIENT
  Age: 45 Year
  Sex: Female
  Weight: 55.34 kg

DRUGS (1)
  1. MOVIPREP [Suspect]
     Indication: COLONOSCOPY
     Dates: start: 20131021, end: 20131022

REACTIONS (1)
  - Drug hypersensitivity [None]
